FAERS Safety Report 8842238 (Version 1)
Quarter: 2012Q4

REPORT INFORMATION
  Report Type: Spontaneous
  Country: US (occurrence: None)
  Receive Date: 20121015
  Receipt Date: 20121015
  Transmission Date: 20130627
  Serious: Yes (Hospitalization)
  Sender: FDA-Public Use
  Company Number: None

PATIENT
  Age: 36 Year
  Sex: Female
  Weight: 168 kg

DRUGS (1)
  1. GARLIC [Suspect]
     Indication: IMMUNE DISORDER (NOS)
     Dosage: 2 tabs once a day po
     Route: 048
     Dates: start: 20120920, end: 20120928

REACTIONS (1)
  - Hepatitis acute [None]
